FAERS Safety Report 21950980 (Version 1)
Quarter: 2023Q1

REPORT INFORMATION
  Report Type: Spontaneous
  Country: AU (occurrence: AU)
  Receive Date: 20230203
  Receipt Date: 20230203
  Transmission Date: 20230418
  Serious: Yes (Other)
  Sender: FDA-Public Use
  Company Number: AU-CIPLA LTD.-2023AU00711

PATIENT

DRUGS (8)
  1. ESCITALOPRAM [Suspect]
     Active Substance: ESCITALOPRAM OXALATE
     Indication: Cognitive disorder
     Dosage: UNK
     Route: 065
  2. MIRTAZAPINE [Suspect]
     Active Substance: MIRTAZAPINE
     Indication: Cognitive disorder
     Dosage: UNK
     Route: 048
  3. RISPERIDONE [Suspect]
     Active Substance: RISPERIDONE
     Indication: Chorea
     Dosage: UNK
     Route: 048
  4. RISPERIDONE [Suspect]
     Active Substance: RISPERIDONE
     Indication: Dysphagia
  5. TETRABENAZINE [Suspect]
     Active Substance: TETRABENAZINE
     Indication: Chorea
     Dosage: UNK
     Route: 048
  6. TETRABENAZINE [Suspect]
     Active Substance: TETRABENAZINE
     Indication: Dysphagia
  7. VALPROATE SODIUM [Suspect]
     Active Substance: VALPROATE SODIUM
     Indication: Product used for unknown indication
     Dosage: UNK
     Route: 065
  8. VALPROATE SODIUM [Suspect]
     Active Substance: VALPROATE SODIUM
     Dosage: UNK
     Route: 042

REACTIONS (2)
  - Drug ineffective [Unknown]
  - Sedation [Unknown]
